FAERS Safety Report 16446883 (Version 4)
Quarter: 2020Q1

REPORT INFORMATION
  Report Type: Spontaneous
  Country: JP (occurrence: JP)
  Receive Date: 20190618
  Receipt Date: 20200108
  Transmission Date: 20200409
  Serious: Yes (Hospitalization, Other)
  Sender: FDA-Public Use
  Company Number: JP-PFIZER INC-2019246500

PATIENT
  Sex: Female

DRUGS (5)
  1. GRACEPTOR [Suspect]
     Active Substance: TACROLIMUS
     Dosage: UNK
     Route: 048
  2. MEDROL [Suspect]
     Active Substance: METHYLPREDNISOLONE
     Dosage: 20 MG, UNK
     Route: 048
     Dates: start: 2019
  3. MEDROL [Suspect]
     Active Substance: METHYLPREDNISOLONE
     Dosage: 8 MG, UNK
     Route: 048
     Dates: start: 2019, end: 20190704
  4. CELLCEPT [Suspect]
     Active Substance: MYCOPHENOLATE MOFETIL\MYCOPHENOLATE MOFETIL HYDROCHLORIDE
     Dosage: UNK
     Route: 048
  5. MEDROL [Suspect]
     Active Substance: METHYLPREDNISOLONE
     Dosage: 4 MG, 1X/DAY
     Route: 048
     Dates: start: 20190705

REACTIONS (20)
  - Abdominal pain upper [Unknown]
  - Chest discomfort [Unknown]
  - Gastritis erosive [Unknown]
  - Dyschezia [Unknown]
  - Tremor [Unknown]
  - Pollakiuria [Unknown]
  - Restlessness [Unknown]
  - Depressive symptom [Unknown]
  - Alopecia [Unknown]
  - Cytomegalovirus infection [Unknown]
  - Gastric disorder [Unknown]
  - Abdominal distension [Unknown]
  - Micturition urgency [Unknown]
  - Body temperature decreased [Unknown]
  - Feeling abnormal [Unknown]
  - Blood glucose increased [Unknown]
  - Abdominal discomfort [Unknown]
  - Discomfort [Unknown]
  - Anxiety [Unknown]
  - Initial insomnia [Unknown]

NARRATIVE: CASE EVENT DATE: 2019
